FAERS Safety Report 4989988-8 (Version None)
Quarter: 2006Q2

REPORT INFORMATION
  Report Type: 
  Country: None (occurrence: None)
  Receive Date: 20060503
  Receipt Date: 20060421
  Transmission Date: 20061013
  Serious: Yes (Other)
  Sender: FDA-Public Use
  Company Number: US-JNJFOC-20060405020

PATIENT
  Age: 9 Year
  Sex: Male
  Weight: 39.46 kg

DRUGS (2)
  1. CONCERTA [Suspect]
     Route: 048
  2. KLONOPIN [Concomitant]

REACTIONS (1)
  - CARDIOMEGALY [None]
